FAERS Safety Report 5323825-7 (Version None)
Quarter: 2007Q2

REPORT INFORMATION
  Report Type: 
  Country: None (occurrence: None)
  Receive Date: 20070514
  Receipt Date: 20070504
  Transmission Date: 20071010
  Serious: Yes (Other)
  Sender: FDA-Public Use
  Company Number: B0469925A

PATIENT
  Age: 64 Year
  Sex: Male
  Weight: 82 kg

DRUGS (5)
  1. AVODART [Suspect]
     Indication: BENIGN PROSTATIC HYPERPLASIA
     Dosage: .5MG PER DAY
     Route: 048
     Dates: start: 20060901
  2. TAMSULOSIN HCL [Suspect]
     Indication: BENIGN PROSTATIC HYPERPLASIA
     Dosage: .4MG PER DAY
     Route: 048
     Dates: start: 20061201
  3. LESCOL [Concomitant]
     Dosage: 80MG PER DAY
     Route: 048
     Dates: start: 20030101
  4. COZAAR [Concomitant]
     Dosage: 50MG PER DAY
     Route: 048
     Dates: start: 19990101
  5. METOPROLOL SUCCINATE [Concomitant]
     Dosage: 100MG PER DAY
     Route: 048
     Dates: start: 19990101

REACTIONS (1)
  - FAECAL INCONTINENCE [None]
